FAERS Safety Report 7686139-6 (Version None)
Quarter: 2011Q3

REPORT INFORMATION
  Report Type: 
  Country: None (occurrence: None)
  Receive Date: 20110816
  Receipt Date: 20110715
  Transmission Date: 20111222
  Serious: Yes (Other)
  Sender: FDA-Public Use
  Company Number: US-PFIZER INC-2011121841

PATIENT
  Sex: Male

DRUGS (5)
  1. MOTRIN [Suspect]
     Route: 048
  2. MOBIC [Suspect]
  3. COUMADIN [Concomitant]
  4. BC POWDER [Suspect]
     Route: 048
  5. ASPIRIN [Suspect]
     Route: 048

REACTIONS (2)
  - PAIN [None]
  - GASTROINTESTINAL HAEMORRHAGE [None]
